FAERS Safety Report 22219008 (Version 7)
Quarter: 2024Q4

REPORT INFORMATION
  Report Type: Spontaneous
  Country: CA (occurrence: CA)
  Receive Date: 20230417
  Receipt Date: 20241001
  Transmission Date: 20250114
  Serious: Yes (Other)
  Sender: PFIZER
  Company Number: CA-PFIZER INC-PV202200008460

PATIENT
  Age: 55 Year
  Sex: Female
  Weight: 74.4 kg

DRUGS (7)
  1. IBRANCE [Suspect]
     Active Substance: PALBOCICLIB
     Indication: Breast cancer metastatic
     Dosage: 125 MG, CYCLIC (125 MG DAILY FOR 21 DAYS OF 28 DAYS CYCLE)
     Dates: start: 20210601
  2. IBRANCE [Suspect]
     Active Substance: PALBOCICLIB
     Dosage: 75 MG, CYCLIC (75MG DAILY FOR 21 DAYS FOR 28 DAY CYCLE/7 DAYS OFF)
     Route: 048
  3. FULVESTRANT [Suspect]
     Active Substance: FULVESTRANT
     Dosage: UNK
     Dates: start: 2021
  4. LIORESAL [Concomitant]
     Active Substance: BACLOFEN
     Dosage: 5 MG, DAILY
     Route: 048
  5. MOTILIUM [Concomitant]
     Active Substance: DOMPERIDONE
     Dosage: 10 MG, 3X/DAY
     Route: 048
  6. METHADONE [Concomitant]
     Active Substance: METHADONE HYDROCHLORIDE
     Dosage: UNK
  7. METOCLOPRAMIDE [Concomitant]
     Active Substance: METOCLOPRAMIDE
     Dosage: UNK

REACTIONS (11)
  - Aortic arteriosclerosis [Unknown]
  - Spinal compression fracture [Unknown]
  - Osteosclerosis [Unknown]
  - Weight decreased [Unknown]
  - Bone disorder [Unknown]
  - Arthritis [Unknown]
  - Sinus disorder [Unknown]
  - Thyroid calcification [Unknown]
  - Mediastinal fibrosis [Unknown]
  - Insomnia [Unknown]
  - Weight increased [Unknown]

NARRATIVE: CASE EVENT DATE: 20240101
